FAERS Safety Report 16124851 (Version 2)
Quarter: 2019Q2

REPORT INFORMATION
  Report Type: Spontaneous
  Country: FR (occurrence: FR)
  Receive Date: 20190327
  Receipt Date: 20190510
  Transmission Date: 20190711
  Serious: Yes (Hospitalization, Other)
  Sender: FDA-Public Use
  Company Number: FR-ASTRAZENECA-2019SE45984

PATIENT
  Age: 31815 Day
  Sex: Female
  Weight: 49 kg

DRUGS (1)
  1. FASLODEX [Suspect]
     Active Substance: FULVESTRANT
     Indication: BREAST CANCER FEMALE
     Dosage: 1 INJECTION INTO EACH BUTTOCK EVERY 28 DAYS
     Route: 030
     Dates: start: 201901

REACTIONS (4)
  - Product use issue [Recovered/Resolved]
  - Fall [Unknown]
  - Femoral neck fracture [Unknown]
  - Off label use [Recovered/Resolved]

NARRATIVE: CASE EVENT DATE: 20190313
